FAERS Safety Report 23127865 (Version 1)
Quarter: 2023Q4

REPORT INFORMATION
  Report Type: Spontaneous
  Country: FR (occurrence: FR)
  Receive Date: 20231031
  Receipt Date: 20231031
  Transmission Date: 20240109
  Serious: Yes (Other)
  Sender: FDA-Public Use
  Company Number: FR-AFSSAPS-TO2023001779

PATIENT
  Age: 73 Year
  Sex: Male

DRUGS (4)
  1. AMOXICILLIN [Suspect]
     Active Substance: AMOXICILLIN
     Indication: Helicobacter infection
     Dosage: 3 GRAM, ONCE A DAY (1G : 1-1-1 CP/J)
     Route: 048
     Dates: start: 20230323, end: 20230405
  2. CLARITHROMYCIN [Suspect]
     Active Substance: CLARITHROMYCIN
     Indication: Helicobacter infection
     Dosage: 1000 MILLIGRAM, ONCE A DAY (500 MG : 1-0-1 CP/J)
     Route: 048
     Dates: start: 20230323, end: 20230405
  3. ESOMEPRAZOLE [Suspect]
     Active Substance: ESOMEPRAZOLE
     Indication: Helicobacter infection
     Dosage: 80 MILLIGRAM, ONCE A DAY (40 MG : 1-0-1 CP/J)
     Route: 048
     Dates: start: 20230323, end: 20230405
  4. METRONIDAZOLE [Suspect]
     Active Substance: METRONIDAZOLE
     Indication: Helicobacter infection
     Dosage: 1000 MILLIGRAM, ONCE A DAY (500 MG : 1-0-1 CP/J)
     Route: 048
     Dates: start: 20230323, end: 20230405

REACTIONS (2)
  - Acute kidney injury [Recovered/Resolved]
  - Hyponatraemia [Recovered/Resolved]

NARRATIVE: CASE EVENT DATE: 20230416
